FAERS Safety Report 15258622 (Version 1)
Quarter: 2018Q3

REPORT INFORMATION
  Report Type: Spontaneous
  Country: US (occurrence: US)
  Receive Date: 20180809
  Receipt Date: 20180809
  Transmission Date: 20181010
  Serious: Yes (Other)
  Sender: FDA-Public Use
  Company Number: US-INVENTIA-000242

PATIENT
  Age: 31 Year
  Sex: Female

DRUGS (9)
  1. AMITRIPTYLINE [Interacting]
     Active Substance: AMITRIPTYLINE
     Indication: NEURALGIA
  2. NYSTATIN/NYSTATIN/LIPOSOME [Concomitant]
     Indication: RASH
     Dosage: 100,000U/GRAM
     Route: 061
  3. DIAZEPAM. [Concomitant]
     Active Substance: DIAZEPAM
     Dosage: BY MOUTH THREE TIMES A DAY
  4. GLATIRAMER [Concomitant]
     Active Substance: GLATIRAMER
     Dosage: SUBCUTANEOUS 3 TIMES PER WEEK
     Route: 058
  5. TIZANIDINE. [Concomitant]
     Active Substance: TIZANIDINE
     Dosage: BY MOUTH 3 TIMES DAILY
  6. DULOXETINE. [Suspect]
     Active Substance: DULOXETINE
     Indication: NEURALGIA
     Dosage: WEANED FROM 60 MG PO DAILY TO 30 MG PO DAILY
     Route: 048
  7. PARACETAMOL [Concomitant]
     Active Substance: ACETAMINOPHEN
     Indication: PAIN
     Dosage: BY MOUTH EVERY 8 HOURS AS NEEDED FOR PAIN
  8. NITROGLYCERIN. [Concomitant]
     Active Substance: NITROGLYCERIN
     Dosage: 1 INCH TO CHEST FOR SBP }160/90, WIPE OFF AT 120/80
     Route: 062
  9. DOCUSATE/DOCUSATE CALCIUM/DOCUSATE POTASSIUM/DOCUSATE SODIUM [Concomitant]
     Indication: ABDOMINAL DISCOMFORT
     Dosage: PER RECTUM DAILY FOR BOWEL PROGRAM
     Route: 054

REACTIONS (2)
  - Drug interaction [Unknown]
  - Autonomic dysreflexia [Recovered/Resolved]
